FAERS Safety Report 14566002 (Version 2)
Quarter: 2018Q2

REPORT INFORMATION
  Report Type: Spontaneous
  Country: JP (occurrence: JP)
  Receive Date: 20180223
  Receipt Date: 20180422
  Transmission Date: 20180711
  Serious: Yes (Hospitalization, Other)
  Sender: FDA-Public Use
  Company Number: JP-APOTEX-2018AP006244

PATIENT
  Age: 47 Year
  Sex: Male

DRUGS (2)
  1. PAXIL [Suspect]
     Active Substance: PAROXETINE HYDROCHLORIDE
     Indication: ANXIETY DISORDER
     Dosage: UNK
     Route: 048
  2. HIRNAMIN [Concomitant]
     Active Substance: PHENOTHIAZINE
     Dosage: UNK
     Route: 065

REACTIONS (6)
  - Withdrawal syndrome [Unknown]
  - Small intestinal obstruction [Recovered/Resolved]
  - Haematochezia [Unknown]
  - Diverticulitis [Unknown]
  - Malaise [Unknown]
  - Ileus [Unknown]
